FAERS Safety Report 23153489 (Version 1)
Quarter: 2023Q4

REPORT INFORMATION
  Report Type: Spontaneous
  Country: CN (occurrence: CN)
  Receive Date: 20231107
  Receipt Date: 20231107
  Transmission Date: 20240110
  Serious: Yes (Hospitalization)
  Sender: FDA-Public Use
  Company Number: CN-MYLANLABS-2023M1117424

PATIENT
  Age: 17 Year
  Sex: Male

DRUGS (6)
  1. SERTRALINE [Suspect]
     Active Substance: SERTRALINE HYDROCHLORIDE
     Indication: Depression
     Dosage: 200 MILLIGRAM
     Route: 065
  2. SERTRALINE [Suspect]
     Active Substance: SERTRALINE HYDROCHLORIDE
     Indication: Suicidal ideation
  3. SERTRALINE [Suspect]
     Active Substance: SERTRALINE HYDROCHLORIDE
     Indication: Intentional self-injury
  4. LITHIUM [Suspect]
     Active Substance: LITHIUM
     Indication: Depression
     Dosage: 750 MILLIGRAM
     Route: 065
  5. LITHIUM [Suspect]
     Active Substance: LITHIUM
     Indication: Suicidal ideation
  6. LITHIUM [Suspect]
     Active Substance: LITHIUM
     Indication: Intentional self-injury

REACTIONS (1)
  - Drug ineffective [Unknown]
